FAERS Safety Report 7364330-6 (Version None)
Quarter: 2011Q1

REPORT INFORMATION
  Report Type: 
  Country: None (occurrence: None)
  Receive Date: 20110321
  Receipt Date: 20110311
  Transmission Date: 20110831
  Serious: Yes (Hospitalization, Other)
  Sender: FDA-Public Use
  Company Number: US-ASTRAZENECA-2010SE44104

PATIENT
  Age: 19573 Day
  Sex: Male
  Weight: 93 kg

DRUGS (19)
  1. SEROQUEL [Suspect]
     Route: 048
     Dates: start: 20100601
  2. SEROQUEL [Suspect]
     Dosage: TAKING SEROQUEL XR 3 TIMES PER DAY BUT HE IS ONLY PRESCRIBED TO TAKE TWO SEROQUEL AT 8 PM DAILY
     Route: 048
  3. OTC [Concomitant]
     Indication: PAIN
  4. SEROQUEL [Suspect]
     Dosage: TAKING SEROQUEL XR 3 TIMES PER DAY BUT HE IS ONLY PRESCRIBED TO TAKE TWO SEROQUEL AT 8 PM DAILY
     Route: 048
  5. DICLOFENAC [Concomitant]
     Route: 048
     Dates: start: 20100703
  6. METHOCARBAMOL [Concomitant]
     Indication: ARTHRALGIA
     Dosage: 750 MG DAILY, EVERY THREE HOURS
     Route: 048
     Dates: start: 20100713
  7. SEROQUEL [Suspect]
     Indication: DEPRESSION
     Route: 048
  8. SEROQUEL [Suspect]
     Route: 048
     Dates: start: 20100601
  9. NABUMETONE [Concomitant]
  10. SEROQUEL [Suspect]
     Route: 048
     Dates: start: 20100601
  11. SEROQUEL [Suspect]
     Indication: BIPOLAR DISORDER
     Route: 048
  12. SEROQUEL [Suspect]
     Indication: ILL-DEFINED DISORDER
     Route: 048
  13. METHOCARBAMOL [Concomitant]
     Indication: BACK PAIN
     Dosage: 750 MG DAILY, EVERY THREE HOURS
     Route: 048
     Dates: start: 20100713
  14. SEROQUEL [Suspect]
     Dosage: TAKING SEROQUEL XR 3 TIMES PER DAY BUT HE IS ONLY PRESCRIBED TO TAKE TWO SEROQUEL AT 8 PM DAILY
     Route: 048
  15. SEROQUEL [Suspect]
     Route: 048
     Dates: start: 20100601
  16. SEROQUEL [Suspect]
     Route: 048
     Dates: start: 20100601
  17. SEROQUEL [Suspect]
     Route: 048
     Dates: start: 20100601
  18. DIAZEPAM [Concomitant]
     Indication: HEADACHE
     Route: 048
     Dates: start: 20090401
  19. TRAZODONE HCL [Concomitant]
     Dosage: AT NIGHT

REACTIONS (21)
  - AMNESIA [None]
  - INAPPROPRIATE SCHEDULE OF DRUG ADMINISTRATION [None]
  - THERAPEUTIC RESPONSE UNEXPECTED [None]
  - NO ADVERSE EVENT [None]
  - ALTERED STATE OF CONSCIOUSNESS [None]
  - FORMICATION [None]
  - EYE DISORDER [None]
  - DRUG DOSE OMISSION [None]
  - SUICIDE ATTEMPT [None]
  - INSOMNIA [None]
  - MENTAL DISORDER [None]
  - ROAD TRAFFIC ACCIDENT [None]
  - CEREBROVASCULAR ACCIDENT [None]
  - WEIGHT DECREASED [None]
  - FALL [None]
  - DECREASED APPETITE [None]
  - SUICIDAL IDEATION [None]
  - SURGICAL VASCULAR SHUNT [None]
  - MEMORY IMPAIRMENT [None]
  - KNEE OPERATION [None]
  - HEAD INJURY [None]
